FAERS Safety Report 7004119-0 (Version None)
Quarter: 2010Q3

REPORT INFORMATION
  Report Type: 
  Country: None (occurrence: None)
  Receive Date: 20100920
  Receipt Date: 20100204
  Transmission Date: 20110219
  Serious: No
  Sender: FDA-Public Use
  Company Number: US-WYE-H13484110

PATIENT
  Age: 59 Year
  Sex: Male

DRUGS (3)
  1. PRISTIQ [Suspect]
     Indication: DEPRESSION
     Route: 048
     Dates: start: 20081201, end: 20090801
  2. PRISTIQ [Suspect]
     Route: 048
     Dates: start: 20090801, end: 20100101
  3. PRISTIQ [Suspect]
     Route: 048
     Dates: start: 20100101

REACTIONS (2)
  - DYSPHONIA [None]
  - VOCAL CORD ATROPHY [None]
